FAERS Safety Report 11537617 (Version 6)
Quarter: 2016Q1

REPORT INFORMATION
  Report Type: Report from Study
  Country: US (occurrence: US)
  Receive Date: 20150922
  Receipt Date: 20160206
  Transmission Date: 20160525
  Serious: Yes (Other)
  Sender: FDA-Public Use
  Company Number: US-TEVA-595483USA

PATIENT
  Age: 19 Year
  Sex: Female

DRUGS (2)
  1. DEPO-PROVERA [Concomitant]
     Active Substance: MEDROXYPROGESTERONE ACETATE
     Dates: end: 201506
  2. CLARAVIS [Suspect]
     Active Substance: ISOTRETINOIN
     Dosage: 60 MILLIGRAM DAILY;
     Route: 048
     Dates: start: 20150414, end: 20150917

REACTIONS (1)
  - Unintended pregnancy [Recovered/Resolved]

NARRATIVE: CASE EVENT DATE: 20150916
